FAERS Safety Report 9897220 (Version 2)
Quarter: 2014Q2

REPORT INFORMATION
  Report Type: Spontaneous
  Country: JP (occurrence: JP)
  Receive Date: 20140214
  Receipt Date: 20140613
  Transmission Date: 20141212
  Serious: Yes (Other)
  Sender: FDA-Public Use
  Company Number: JP-ROCHE-1347916

PATIENT
  Age: 80 Year
  Sex: Male

DRUGS (1)
  1. RANIBIZUMAB [Suspect]
     Indication: DETACHMENT OF RETINAL PIGMENT EPITHELIUM
     Route: 065

REACTIONS (2)
  - Detachment of retinal pigment epithelium [Unknown]
  - Drug ineffective [Unknown]
